FAERS Safety Report 8263122-3 (Version None)
Quarter: 2012Q2

REPORT INFORMATION
  Report Type: 
  Country: None (occurrence: None)
  Receive Date: 20120405
  Receipt Date: 20120323
  Transmission Date: 20120825
  Serious: Yes (Hospitalization, Other)
  Sender: FDA-Public Use
  Company Number: US-ELI_LILLY_AND_COMPANY-US201203007431

PATIENT
  Sex: Male

DRUGS (12)
  1. PLACEBO [Concomitant]
     Indication: TYPE 2 DIABETES MELLITUS
     Dosage: UNK
     Dates: start: 20110303, end: 20120131
  2. PRAVASTATIN [Concomitant]
  3. SAXAGLIPTIN [Concomitant]
     Indication: TYPE 2 DIABETES MELLITUS
     Dosage: UNK
     Dates: start: 20110303, end: 20120131
  4. ASPIRIN [Concomitant]
  5. LEVEMIR [Concomitant]
     Dosage: 22 IU, UNK
     Dates: start: 20110306
  6. NOVORAPID [Concomitant]
     Indication: TYPE 2 DIABETES MELLITUS
     Dosage: 4 IU, UNK
  7. NOVORAPID [Concomitant]
     Dosage: 6 IU, UNK
     Dates: end: 20110818
  8. CARVEDILOL [Concomitant]
     Dosage: UNK
     Dates: start: 20120117
  9. MONOLONG [Concomitant]
     Dosage: UNK
     Dates: start: 20120201
  10. LEVEMIR [Concomitant]
     Indication: TYPE 2 DIABETES MELLITUS
     Dosage: 24 IU, UNK
  11. VITAMIN B-12 [Concomitant]
     Dosage: UNK
     Dates: start: 20111115
  12. CYMBALTA [Suspect]
     Dosage: UNK
     Dates: end: 20120206

REACTIONS (8)
  - BLOOD ALKALINE PHOSPHATASE INCREASED [None]
  - BLOOD CREATININE ABNORMAL [None]
  - CARDIAC FAILURE CONGESTIVE [None]
  - ASPARTATE AMINOTRANSFERASE INCREASED [None]
  - PNEUMONIA [None]
  - ALANINE AMINOTRANSFERASE INCREASED [None]
  - BLOOD BILIRUBIN INCREASED [None]
  - GAMMA-GLUTAMYLTRANSFERASE INCREASED [None]
